FAERS Safety Report 6294280-8 (Version None)
Quarter: 2009Q3

REPORT INFORMATION
  Report Type: 
  Country: None (occurrence: None)
  Receive Date: 20090803
  Receipt Date: 20090505
  Transmission Date: 20100115
  Serious: No
  Sender: FDA-Public Use
  Company Number: A0782523A

PATIENT
  Age: 40 Year
  Sex: Female

DRUGS (1)
  1. NICORETTE [Suspect]
     Dates: start: 20090501, end: 20090502

REACTIONS (2)
  - DRUG EXPOSURE DURING PREGNANCY [None]
  - NAUSEA [None]
